FAERS Safety Report 7194340-3 (Version None)
Quarter: 2010Q4

REPORT INFORMATION
  Report Type: 
  Country: None (occurrence: None)
  Receive Date: 20101223
  Receipt Date: 20101213
  Transmission Date: 20110411
  Serious: Yes (Hospitalization, Other)
  Sender: FDA-Public Use
  Company Number: US-ELI_LILLY_AND_COMPANY-US201008005996

PATIENT
  Sex: Female

DRUGS (14)
  1. CYMBALTA [Suspect]
     Dosage: 60 MG, UNKNOWN
     Dates: start: 20070717
  2. ANTIBIOTICS [Concomitant]
  3. ATENOLOL [Concomitant]
     Dosage: 50 MG, DAILY (1/D)
     Route: 048
  4. BUPROPION [Concomitant]
     Dosage: 150 MG, 2/D
     Route: 048
  5. FLEXERIL [Concomitant]
     Dosage: 10 MG, 2/D
     Route: 048
  6. COLACE [Concomitant]
     Dosage: 100 MG, AS NEEDED
     Route: 048
  7. NEURONTIN [Concomitant]
     Dosage: 400 MG, EACH EVENING
     Route: 048
  8. LANTUS [Concomitant]
     Dosage: 20 U, 2/D
     Route: 058
  9. HUMALOG [Concomitant]
     Dosage: 12 U, 3/D
     Route: 058
  10. SYNTHROID [Concomitant]
     Dosage: 200 UG, DAILY (1/D)
     Route: 048
  11. PANCREASE [Concomitant]
     Dosage: 1 D/F, 3/D
     Route: 048
  12. PROTONIX [Concomitant]
     Dosage: 40 MG, EACH EVENING
     Route: 048
  13. KAYEXALATE [Concomitant]
     Dosage: 15 G, 2/D
     Route: 048
  14. LASIX [Concomitant]
     Dosage: 40 MG, 2/D
     Route: 048

REACTIONS (5)
  - CELLULITIS [None]
  - CHEST DISCOMFORT [None]
  - DYSPNOEA [None]
  - LUNG INFILTRATION [None]
  - OSTEOMYELITIS [None]
